FAERS Safety Report 8129751-2 (Version None)
Quarter: 2012Q1

REPORT INFORMATION
  Report Type: 
  Country: None (occurrence: None)
  Receive Date: 20120103
  Receipt Date: 20110825
  Transmission Date: 20120608
  Serious: No
  Sender: FDA-Public Use
  Company Number: AE-2011-001129

PATIENT
  Age: 33 Year
  Sex: Female

DRUGS (5)
  1. INCIVEK [Suspect]
     Dosage: ORAL
     Route: 048
     Dates: start: 20110824
  2. RIBAPAC (RIBAVIRIN) [Concomitant]
  3. ABILIFY [Concomitant]
  4. CYMBALTA [Concomitant]
  5. PEGASYS [Concomitant]

REACTIONS (7)
  - TACHYPHRENIA [None]
  - RESTLESSNESS [None]
  - PALPITATIONS [None]
  - IRRITABILITY [None]
  - HEADACHE [None]
  - MUSCULAR WEAKNESS [None]
  - DYSPNOEA [None]
